FAERS Safety Report 6885702-X (Version None)
Quarter: 2010Q3

REPORT INFORMATION
  Report Type: 
  Country: None (occurrence: None)
  Receive Date: 20100729
  Receipt Date: 20080320
  Transmission Date: 20110219
  Serious: No
  Sender: FDA-Public Use
  Company Number: US-PFIZER INC-2008025381

PATIENT
  Sex: Female
  Weight: 63.636 kg

DRUGS (6)
  1. CELEBREX [Suspect]
     Indication: ARTHRITIS
     Dates: start: 20050101, end: 20080101
  2. VITAMIN A [Concomitant]
  3. ARICEPT [Concomitant]
  4. AVANDIA [Concomitant]
  5. NEXIUM [Concomitant]
  6. SUCRALFATE [Concomitant]

REACTIONS (1)
  - TINNITUS [None]
